FAERS Safety Report 19502078 (Version 3)
Quarter: 2021Q3

REPORT INFORMATION
  Report Type: Spontaneous
  Country: JP (occurrence: JP)
  Receive Date: 20210707
  Receipt Date: 20210915
  Transmission Date: 20211014
  Serious: Yes (Hospitalization, Other)
  Sender: FDA-Public Use
  Company Number: JP-009507513-2106JPN002345J

PATIENT
  Age: 7 Decade
  Sex: Male

DRUGS (2)
  1. AXITINIB [Concomitant]
     Active Substance: AXITINIB
     Dosage: 10 MILLIGRAM, BID
     Route: 048
     Dates: start: 20210413, end: 202106
  2. KEYTRUDA [Suspect]
     Active Substance: PEMBROLIZUMAB
     Indication: RENAL CELL CARCINOMA
     Dosage: 200 MILLIGRAM, Q3W
     Route: 041
     Dates: start: 20210413, end: 202106

REACTIONS (1)
  - Pulmonary oedema [Recovered/Resolved]

NARRATIVE: CASE EVENT DATE: 202106
